FAERS Safety Report 10238067 (Version 1)
Quarter: 2014Q2

REPORT INFORMATION
  Report Type: Spontaneous
  Country: FR (occurrence: FR)
  Receive Date: 20140616
  Receipt Date: 20140616
  Transmission Date: 20141212
  Serious: Yes (Hospitalization)
  Sender: FDA-Public Use
  Company Number: FR-JNJFOC-20140602156

PATIENT
  Age: 42 Year
  Sex: Female

DRUGS (1)
  1. TRIELLA [Suspect]
     Indication: CONTRACEPTION
     Dosage: SINCE MANY YEARS
     Route: 048

REACTIONS (1)
  - Ischaemic stroke [Recovering/Resolving]
